FAERS Safety Report 7168019-8 (Version None)
Quarter: 2010Q4

REPORT INFORMATION
  Report Type: 
  Country: None (occurrence: None)
  Receive Date: 20101216
  Receipt Date: 20101130
  Transmission Date: 20110411
  Serious: No
  Sender: FDA-Public Use
  Company Number: US-B.I. PHARMACEUTICALS,INC./RIDGEFIELD-2010-BP-13550BP

PATIENT
  Age: 69 Year
  Sex: Male

DRUGS (19)
  1. PRADAXA [Suspect]
     Indication: ATRIAL FIBRILLATION
     Dosage: 300 MG
     Route: 048
     Dates: start: 20101119, end: 20101128
  2. KLOR-CON [Concomitant]
     Indication: MINERAL SUPPLEMENTATION
  3. ALLOPURINOL [Concomitant]
     Indication: GOUT
  4. FUROSEMIDE [Concomitant]
     Indication: FLUID RETENTION
  5. KEPPRA [Concomitant]
     Indication: CONVULSION
  6. NEXIUM [Concomitant]
     Indication: GASTROOESOPHAGEAL REFLUX DISEASE
  7. TYLENOL (CAPLET) [Concomitant]
     Indication: ARTHRALGIA
  8. LIPITOR [Concomitant]
     Indication: BLOOD CHOLESTEROL INCREASED
  9. NIACIN [Concomitant]
     Indication: BLOOD CHOLESTEROL INCREASED
  10. LEXAPRO [Concomitant]
     Indication: STRESS
  11. CARVEDILOL [Concomitant]
     Indication: CARDIAC DISORDER
  12. HYDROCODONE [Concomitant]
     Indication: OSTEOARTHRITIS
  13. ADVAIR [Concomitant]
     Indication: CHRONIC OBSTRUCTIVE PULMONARY DISEASE
  14. ASPIRIN [Concomitant]
     Indication: PROPHYLAXIS
  15. DIGOXIN [Concomitant]
     Indication: ATRIAL FIBRILLATION
  16. IRON [Concomitant]
     Indication: SUPPLEMENTATION THERAPY
  17. FLECTOR [Concomitant]
     Indication: ARTHRALGIA
  18. GLUCOSAMIDE [Concomitant]
     Indication: ARTHRALGIA
  19. PLAVIX [Concomitant]

REACTIONS (3)
  - DIZZINESS [None]
  - FALL [None]
  - TREMOR [None]
